FAERS Safety Report 7439459-4 (Version None)
Quarter: 2011Q2

REPORT INFORMATION
  Report Type: 
  Country: None (occurrence: None)
  Receive Date: 20110427
  Receipt Date: 20110408
  Transmission Date: 20111010
  Serious: Yes (Other)
  Sender: FDA-Public Use
  Company Number: US-BAYER-2011-035155

PATIENT
  Age: 21 Year
  Sex: Female
  Weight: 83.9 kg

DRUGS (6)
  1. YASMIN [Suspect]
     Dosage: UNK
     Dates: start: 20090101, end: 20090401
  2. YASMIN [Suspect]
     Dosage: UNK
     Dates: start: 20071120, end: 20080202
  3. YASMIN [Suspect]
     Dosage: UNK
     Dates: start: 20080427, end: 20081130
  4. YASMIN [Suspect]
     Dosage: UNK
     Dates: start: 20090104, end: 20090320
  5. NSAID'S [Concomitant]
  6. YASMIN [Suspect]
     Indication: CONTRACEPTION
     Dosage: UNK
     Dates: start: 20070313, end: 20070824

REACTIONS (5)
  - CHOLECYSTITIS CHRONIC [None]
  - CHOLELITHIASIS [None]
  - ABDOMINAL PAIN UPPER [None]
  - OEDEMA PERIPHERAL [None]
  - PAIN IN EXTREMITY [None]
